FAERS Safety Report 21036758 (Version 2)
Quarter: 2022Q3

REPORT INFORMATION
  Report Type: Report from Study
  Country: CN (occurrence: None)
  Receive Date: 20220702
  Receipt Date: 20220803
  Transmission Date: 20221027
  Serious: Yes (Hospitalization)
  Sender: FDA-Public Use
  Company Number: CN-ROCHE-3126428

PATIENT
  Age: 64 Year
  Sex: Male
  Weight: 78 kg

DRUGS (5)
  1. ATEZOLIZUMAB [Suspect]
     Active Substance: ATEZOLIZUMAB
     Indication: HER2 positive gastric cancer
     Dosage: DOSAGE FORM: LIQUID?DATE OF LAST DOSE PRIOR TO ADVERSE EVENT ON 02/MAR/2022
     Route: 041
  2. TRASTUZUMAB [Suspect]
     Active Substance: TRASTUZUMAB
     Indication: HER2 positive gastric cancer
     Dosage: DOSAGE FORM: LYOPHILIZED FORMULATION?DATE OF LAST DOSE PRIOR TO ADVERSE EVENT ON 02/MAR/2022
     Route: 041
  3. CAPECITABINE [Suspect]
     Active Substance: CAPECITABINE
     Indication: HER2 positive gastric cancer
     Dosage: TWICE A DAY ORALLY ON DAYS 1-14 OF 21 DAYS CYCLE, REPEATED EVERY 3 WEEKS (EACH CYCLE IS 3 WEEKS)
     Route: 048
     Dates: start: 20220118
  4. CAPECITABINE [Suspect]
     Active Substance: CAPECITABINE
     Dosage: DATE OF LAST DOSE PRIOR TO ADVERSE EVENT ON 16/MAR/2022
     Route: 048
     Dates: start: 20220118
  5. OXALIPLATIN [Suspect]
     Active Substance: OXALIPLATIN
     Indication: HER2 positive gastric cancer
     Dosage: DOSAGE FORM: LYOPHILIZED LUMP OR POWDER?DATE OF LAST DOSE PRIOR TO ADVERSE EVENT ON 02/MAR/2022
     Route: 041

REACTIONS (1)
  - Ketoacidosis [Recovered/Resolved]

NARRATIVE: CASE EVENT DATE: 20220620
